FAERS Safety Report 7901556-4 (Version None)
Quarter: 2011Q4

REPORT INFORMATION
  Report Type: 
  Country: None (occurrence: None)
  Receive Date: 20111108
  Receipt Date: 20111031
  Transmission Date: 20120403
  Serious: Yes (Hospitalization)
  Sender: FDA-Public Use
  Company Number: CA-JNJFOC-20111101615

PATIENT
  Sex: Male
  Weight: 65 kg

DRUGS (2)
  1. IMURAN [Concomitant]
     Dosage: 21/2
     Route: 048
  2. REMICADE [Suspect]
     Indication: CROHN'S DISEASE
     Route: 042
     Dates: start: 20100101

REACTIONS (1)
  - HUMERUS FRACTURE [None]
